FAERS Safety Report 9688206 (Version 1)
Quarter: 2013Q4

REPORT INFORMATION
  Report Type: Spontaneous
  Country: DE (occurrence: DE)
  Receive Date: 20131114
  Receipt Date: 20131114
  Transmission Date: 20140711
  Serious: Yes (Hospitalization)
  Sender: FDA-Public Use
  Company Number: DE-BRISTOL-MYERS SQUIBB COMPANY-19808641

PATIENT
  Age: 84 Year
  Sex: Female
  Weight: 72 kg

DRUGS (2)
  1. METFORMIN HCL [Suspect]
     Indication: DIABETES MELLITUS
     Dosage: 12MAY1991-26FEB2013;?26FEB2013-15AUG2013
     Dates: start: 19910512, end: 20130815
  2. EXFORGE HCT [Concomitant]
     Indication: HYPERTENSION
     Dates: start: 20101022

REACTIONS (6)
  - Hypertensive crisis [Recovered/Resolved]
  - Epistaxis [Recovered/Resolved]
  - Headache [Recovered/Resolved]
  - Blood pressure systolic increased [Recovered/Resolved]
  - Urine uric acid increased [Not Recovered/Not Resolved]
  - Creatinine urine increased [Not Recovered/Not Resolved]
